FAERS Safety Report 19122897 (Version 1)
Quarter: 2021Q2

REPORT INFORMATION
  Report Type: Spontaneous
  Country: US (occurrence: US)
  Receive Date: 20210412
  Receipt Date: 20210412
  Transmission Date: 20210717
  Serious: Yes (Hospitalization)
  Sender: FDA-Public Use
  Company Number: US-MYLANLABS-2021M1021492

PATIENT
  Age: 52 Year
  Sex: Male

DRUGS (3)
  1. PREDNISONE. [Suspect]
     Active Substance: PREDNISONE
     Dosage: 20 MILLIGRAM 20MG EVERY 3?5 DAYS
     Route: 048
  2. PREDNISONE. [Suspect]
     Active Substance: PREDNISONE
     Indication: ACUTE FEBRILE NEUTROPHILIC DERMATOSIS
     Dosage: 80 MILLIGRAM, QD
     Route: 048
  3. TRIAMCINOLONE [Suspect]
     Active Substance: TRIAMCINOLONE
     Indication: ACUTE FEBRILE NEUTROPHILIC DERMATOSIS
     Dosage: UNK
     Route: 061

REACTIONS (1)
  - Drug ineffective [Unknown]
